FAERS Safety Report 12846523 (Version 2)
Quarter: 2016Q4

REPORT INFORMATION
  Report Type: Spontaneous
  Country: JP (occurrence: JP)
  Receive Date: 20161014
  Receipt Date: 20161025
  Transmission Date: 20170207
  Serious: Yes (Death, Other)
  Sender: FDA-Public Use
  Company Number: JP-AMGEN-JPNSP2016142027

PATIENT
  Age: 69 Year
  Sex: Male

DRUGS (2)
  1. G-LASTA [Suspect]
     Active Substance: PEGFILGRASTIM
     Indication: COLONY STIMULATING FACTOR PROPHYLAXIS
     Dosage: UNK
     Route: 058
  2. JEVTANA [Suspect]
     Active Substance: CABAZITAXEL
     Indication: PROSTATE CANCER
     Dosage: UNK
     Route: 041

REACTIONS (1)
  - Febrile neutropenia [Fatal]
